FAERS Safety Report 24081780 (Version 1)
Quarter: 2024Q3

REPORT INFORMATION
  Report Type: Spontaneous
  Country: US (occurrence: US)
  Receive Date: 20240712
  Receipt Date: 20240712
  Transmission Date: 20241017
  Serious: Yes (Hospitalization, Other)
  Sender: Haleon PLC
  Company Number: US-HALEON-2185144

PATIENT
  Age: 66 Year
  Sex: Female

DRUGS (2)
  1. PHENYLEPHRINE [Suspect]
     Active Substance: PHENYLEPHRINE HYDROCHLORIDE
     Indication: Product used for unknown indication
  2. NOREPINEPHRINE [Suspect]
     Active Substance: NOREPINEPHRINE\NOREPINEPHRINE BITARTRATE
     Indication: Product used for unknown indication

REACTIONS (6)
  - Shock [Recovered/Resolved]
  - Cardiomyopathy [Recovered/Resolved]
  - Large intestine perforation [Recovered/Resolved]
  - Diarrhoea haemorrhagic [Recovered/Resolved]
  - Abnormal loss of weight [Recovered/Resolved]
  - Fall [Recovered/Resolved]
